FAERS Safety Report 8029077-1 (Version None)
Quarter: 2012Q1

REPORT INFORMATION
  Report Type: 
  Country: None (occurrence: None)
  Receive Date: 20120106
  Receipt Date: 20111227
  Transmission Date: 20120608
  Serious: Yes (Death)
  Sender: FDA-Public Use
  Company Number: US-JNJFOC-20111212580

PATIENT
  Age: 58 Year
  Sex: Female

DRUGS (6)
  1. DOXYLAMINE SUCCINATE [Suspect]
     Indication: ILL-DEFINED DISORDER
     Route: 048
  2. ALPRAZOLAM [Suspect]
     Indication: ILL-DEFINED DISORDER
     Route: 048
  3. ZOLPIDEM [Suspect]
     Indication: ILL-DEFINED DISORDER
     Route: 048
  4. FLUOXETINE [Suspect]
     Indication: ILL-DEFINED DISORDER
     Route: 048
  5. DEXTROMETHORPHAN HYDROBROMIDE [Suspect]
     Indication: ILL-DEFINED DISORDER
     Route: 048
  6. HYDROCODONE BITARTRATE + ACETAMINOPHEN [Suspect]
     Indication: ILL-DEFINED DISORDER
     Route: 048

REACTIONS (3)
  - TOXICITY TO VARIOUS AGENTS [None]
  - COMPLETED SUICIDE [None]
  - CARDIO-RESPIRATORY ARREST [None]
